FAERS Safety Report 8129292-2 (Version None)
Quarter: 2012Q1

REPORT INFORMATION
  Report Type: 
  Country: None (occurrence: None)
  Receive Date: 20120210
  Receipt Date: 20111130
  Transmission Date: 20120608
  Serious: No
  Sender: FDA-Public Use
  Company Number: US-BRISTOL-MYERS SQUIBB COMPANY-16259418

PATIENT
  Sex: Female

DRUGS (1)
  1. ORENCIA [Suspect]
     Dosage: NO OF INFUSIONS:6 LAST INFUSION 16NOV2011

REACTIONS (10)
  - COUGH [None]
  - BACK PAIN [None]
  - GAIT DISTURBANCE [None]
  - FATIGUE [None]
  - HEADACHE [None]
  - OEDEMA PERIPHERAL [None]
  - HYPERHIDROSIS [None]
  - PAIN [None]
  - EYE SWELLING [None]
  - RHINORRHOEA [None]
